FAERS Safety Report 10254104 (Version 1)
Quarter: 2014Q2

REPORT INFORMATION
  Report Type: Spontaneous
  Country: US (occurrence: US)
  Receive Date: 20140623
  Receipt Date: 20140623
  Transmission Date: 20141212
  Serious: No
  Sender: FDA-Public Use
  Company Number: US-AMGEN INC.-USASP2014046285

PATIENT
  Age: 64 Year
  Sex: Female

DRUGS (5)
  1. ENBREL [Suspect]
     Indication: PRODUCT USED FOR UNKNOWN INDICATION
     Dosage: 25 MG, 3 TIMES/WK
     Route: 058
  2. TRAMADOL HCL [Concomitant]
     Dosage: 50 MG, UNK
  3. VITAMIN D                          /00107901/ [Concomitant]
     Dosage: 1000 UNIT, UNK
  4. CALCIUM CARBIMIDE [Concomitant]
     Dosage: 1500 MG, UNK
  5. PROLIA [Concomitant]
     Dosage: 60 MG, UNK

REACTIONS (1)
  - Therapeutic response decreased [Unknown]
